FAERS Safety Report 7086816-4 (Version None)
Quarter: 2010Q4

REPORT INFORMATION
  Report Type: 
  Country: None (occurrence: None)
  Receive Date: 20101105
  Receipt Date: 20101029
  Transmission Date: 20110411
  Serious: Yes (Life-Threatening, Hospitalization)
  Sender: FDA-Public Use
  Company Number: FR-MERCK-1010FRA00111

PATIENT
  Age: 54 Year
  Sex: Male

DRUGS (13)
  1. EMEND [Suspect]
     Indication: VOMITING
     Route: 048
     Dates: start: 20100913, end: 20100913
  2. OXALIPLATIN [Suspect]
     Indication: RECTAL CANCER
     Route: 042
     Dates: start: 20100913, end: 20100913
  3. ELVORINE [Suspect]
     Indication: ANAEMIA
     Route: 042
     Dates: start: 20100913, end: 20100913
  4. SOLU-MEDROL [Suspect]
     Route: 042
     Dates: start: 20100913, end: 20100913
  5. POLARAMINE [Suspect]
     Indication: URTICARIA
     Route: 042
     Dates: start: 20100913, end: 20100913
  6. ERBITUX [Suspect]
     Indication: RECTAL CANCER
     Route: 042
     Dates: start: 20100913
  7. CALCIUM GLUCARATE [Suspect]
     Indication: ADVERSE DRUG REACTION
     Route: 042
     Dates: start: 20100913, end: 20100913
  8. MAGNESIUM SULFATE [Suspect]
     Indication: ADVERSE DRUG REACTION
     Route: 042
     Dates: start: 20100913, end: 20100913
  9. GLUCOPHAGE [Concomitant]
     Route: 065
  10. EZETIMIBE/SIMVASTATIN [Concomitant]
     Route: 048
  11. KARDEGIC [Concomitant]
     Route: 065
  12. TAREG [Concomitant]
     Route: 065
  13. BISOPROLOL [Concomitant]
     Route: 065

REACTIONS (2)
  - HYPOTENSION [None]
  - OXYGEN SATURATION DECREASED [None]
